FAERS Safety Report 6383339-2 (Version None)
Quarter: 2009Q4

REPORT INFORMATION
  Report Type: 
  Country: None (occurrence: None)
  Receive Date: 20091001
  Receipt Date: 20090918
  Transmission Date: 20100525
  Serious: Yes (Disabling, Other)
  Sender: FDA-Public Use
  Company Number: PHHY2009CA34283

PATIENT
  Sex: Female

DRUGS (12)
  1. ACLASTA [Suspect]
     Indication: OSTEOPOROSIS
  2. PREDNISONE TAB [Concomitant]
     Dosage: 5 MG
  3. PREDNISONE TAB [Concomitant]
     Dosage: 10 MG
     Dates: start: 20090226
  4. METHOTREXATE [Concomitant]
  5. LOSEC [Concomitant]
     Dosage: 20 MG
  6. MICARDIS [Concomitant]
     Dosage: 80 MG A DAY
  7. LIPITOR [Concomitant]
     Dosage: 10 MG
  8. VITAMIN D [Concomitant]
     Dosage: 1000 UNITS
  9. CALCIUM [Concomitant]
     Dosage: 1250 MG, TID
  10. DILTIAZEM [Concomitant]
     Dosage: 240 MG ONCE A DAY
  11. SPIRONOLACTONE [Concomitant]
     Dosage: 200 MG ONCE A DAY
  12. IMOVANE [Concomitant]
     Dosage: 7.5 MG, QHS PRN

REACTIONS (25)
  - ABDOMINAL DISCOMFORT [None]
  - ABNORMAL DREAMS [None]
  - ACTIVITIES OF DAILY LIVING IMPAIRED [None]
  - ARTHRALGIA [None]
  - BONE PAIN [None]
  - CHILLS [None]
  - COUGH [None]
  - DISORIENTATION [None]
  - DYSPNOEA [None]
  - GAIT DISTURBANCE [None]
  - HALLUCINATION [None]
  - HEADACHE [None]
  - HYPERCALCAEMIA [None]
  - HYPOTENSION [None]
  - JOINT SWELLING [None]
  - MALAISE [None]
  - MUSCULOSKELETAL DISORDER [None]
  - MUSCULOSKELETAL PAIN [None]
  - MUSCULOSKELETAL STIFFNESS [None]
  - NAUSEA [None]
  - OEDEMA PERIPHERAL [None]
  - RHEUMATOID ARTHRITIS [None]
  - SYNOVIAL DISORDER [None]
  - VOMITING [None]
  - WHEEZING [None]
